FAERS Safety Report 9156690 (Version 1)
Quarter: 2013Q1

REPORT INFORMATION
  Report Type: Spontaneous
  Country: US (occurrence: None)
  Receive Date: 20130207
  Receipt Date: 20130207
  Transmission Date: 20140127
  Serious: Yes (Other)
  Sender: FDA-Public Use
  Company Number: A1010371A

PATIENT
  Age: 63 Year
  Sex: Male

DRUGS (1)
  1. METHYLCELLULOSE (FORMULATION UNKNOWN) (METHYLCELLULOSE) [Suspect]
     Dosage: 4 WEEKS

REACTIONS (1)
  - Nephrolithiasis [None]
